FAERS Safety Report 13926616 (Version 3)
Quarter: 2025Q2

REPORT INFORMATION
  Report Type: Report from Study
  Country: ES (occurrence: ES)
  Receive Date: 20170831
  Receipt Date: 20250624
  Transmission Date: 20250717
  Serious: Yes (Life-Threatening, Hospitalization)
  Sender: MYLAN
  Company Number: ES-AGEMED-313618444

PATIENT
  Age: 48 Year
  Sex: Female

DRUGS (20)
  1. LYRICA [Interacting]
     Active Substance: PREGABALIN
     Indication: Product used for unknown indication
     Dates: start: 20170215, end: 20170215
  2. LYRICA [Interacting]
     Active Substance: PREGABALIN
     Route: 048
     Dates: start: 20170215, end: 20170215
  3. LYRICA [Interacting]
     Active Substance: PREGABALIN
     Route: 048
     Dates: start: 20170215, end: 20170215
  4. LYRICA [Interacting]
     Active Substance: PREGABALIN
     Dates: start: 20170215, end: 20170215
  5. ACETAMINOPHEN [Interacting]
     Active Substance: ACETAMINOPHEN
     Indication: Product used for unknown indication
     Dates: start: 20170215, end: 20170215
  6. ACETAMINOPHEN [Interacting]
     Active Substance: ACETAMINOPHEN
     Route: 048
     Dates: start: 20170215, end: 20170215
  7. ACETAMINOPHEN [Interacting]
     Active Substance: ACETAMINOPHEN
     Route: 048
     Dates: start: 20170215, end: 20170215
  8. ACETAMINOPHEN [Interacting]
     Active Substance: ACETAMINOPHEN
     Dates: start: 20170215, end: 20170215
  9. METOCLOPRAMIDE HYDROCHLORIDE [Interacting]
     Active Substance: METOCLOPRAMIDE HYDROCHLORIDE
     Indication: Product used for unknown indication
     Dates: start: 20170215, end: 20170215
  10. METOCLOPRAMIDE HYDROCHLORIDE [Interacting]
     Active Substance: METOCLOPRAMIDE HYDROCHLORIDE
     Route: 048
     Dates: start: 20170215, end: 20170215
  11. METOCLOPRAMIDE HYDROCHLORIDE [Interacting]
     Active Substance: METOCLOPRAMIDE HYDROCHLORIDE
     Route: 048
     Dates: start: 20170215, end: 20170215
  12. METOCLOPRAMIDE HYDROCHLORIDE [Interacting]
     Active Substance: METOCLOPRAMIDE HYDROCHLORIDE
     Dates: start: 20170215, end: 20170215
  13. BROMAZEPAM [Interacting]
     Active Substance: BROMAZEPAM
     Indication: Product used for unknown indication
     Dates: start: 20170215, end: 20170215
  14. BROMAZEPAM [Interacting]
     Active Substance: BROMAZEPAM
     Route: 048
     Dates: start: 20170215, end: 20170215
  15. BROMAZEPAM [Interacting]
     Active Substance: BROMAZEPAM
     Route: 048
     Dates: start: 20170215, end: 20170215
  16. BROMAZEPAM [Interacting]
     Active Substance: BROMAZEPAM
     Dates: start: 20170215, end: 20170215
  17. FENTANYL [Concomitant]
     Active Substance: FENTANYL
     Indication: Cancer pain
  18. FENTANYL [Concomitant]
     Active Substance: FENTANYL
     Route: 062
  19. FENTANYL [Concomitant]
     Active Substance: FENTANYL
     Route: 062
  20. FENTANYL [Concomitant]
     Active Substance: FENTANYL

REACTIONS (5)
  - Acute hepatic failure [Recovered/Resolved]
  - Suicide attempt [Unknown]
  - Depressed level of consciousness [Recovered/Resolved]
  - Intentional overdose [Recovered/Resolved]
  - Drug interaction [Not Recovered/Not Resolved]

NARRATIVE: CASE EVENT DATE: 20170215
